FAERS Safety Report 21593931 (Version 2)
Quarter: 2023Q1

REPORT INFORMATION
  Report Type: Spontaneous
  Country: US (occurrence: US)
  Receive Date: 20221115
  Receipt Date: 20230213
  Transmission Date: 20230417
  Serious: No
  Sender: FDA-Public Use
  Company Number: US-VIIV HEALTHCARE LIMITED-US2022AMR160824

PATIENT
  Age: 40 Year
  Sex: Male

DRUGS (20)
  1. RILPIVIRINE [Suspect]
     Active Substance: RILPIVIRINE
     Indication: HIV infection
     Dosage: UNK, UNK Z EVERY MONTH 600/900 MG
     Route: 030
     Dates: start: 20220504
  2. RILPIVIRINE [Suspect]
     Active Substance: RILPIVIRINE
     Dosage: UNK UNK, Z EVERY MONTH 400/600 MG
     Route: 030
     Dates: start: 20220601
  3. RILPIVIRINE [Suspect]
     Active Substance: RILPIVIRINE
     Dosage: UNK UNK, Z: EVERY MONTH 600/900 MG
     Route: 030
     Dates: start: 20220702
  4. RILPIVIRINE [Suspect]
     Active Substance: RILPIVIRINE
     Dosage: UNK UNK, Z: EVERY MONTH 600/900 MG
     Route: 030
     Dates: start: 20220801
  5. RILPIVIRINE [Suspect]
     Active Substance: RILPIVIRINE
     Dosage: UNK UNK, Z: EVERY MONTH 600/900 MG
     Route: 030
     Dates: start: 20220830
  6. RILPIVIRINE [Suspect]
     Active Substance: RILPIVIRINE
     Dosage: UNK UNK, Z: EVERY MONTH 600/900 MG
     Route: 030
     Dates: start: 20220929
  7. RILPIVIRINE [Suspect]
     Active Substance: RILPIVIRINE
     Dosage: UNK UNK, Z:EVERY MONTH 600/900 MG
     Route: 030
     Dates: start: 20221026
  8. RILPIVIRINE [Suspect]
     Active Substance: RILPIVIRINE
     Dosage: UNK UNK, Z:EVERY MONTH 600/900 MG
     Route: 030
     Dates: start: 20221122
  9. CABOTEGRAVIR [Suspect]
     Active Substance: CABOTEGRAVIR
     Indication: HIV infection
     Dosage: UNK, UNK Z EVERY MONTH 600/900 MG
     Route: 030
     Dates: start: 20220504
  10. CABOTEGRAVIR [Suspect]
     Active Substance: CABOTEGRAVIR
     Dosage: UNK UNK, Z EVERY MONTH 400/600 MG
     Route: 030
     Dates: start: 20220601
  11. CABOTEGRAVIR [Suspect]
     Active Substance: CABOTEGRAVIR
     Dosage: UNK UNK, Z: EVERY MONTH 600/900 MG
     Route: 030
     Dates: start: 20220702
  12. CABOTEGRAVIR [Suspect]
     Active Substance: CABOTEGRAVIR
     Dosage: UNK UNK, Z: EVERY MONTH 600/900 MG
     Route: 030
     Dates: start: 20220801
  13. CABOTEGRAVIR [Suspect]
     Active Substance: CABOTEGRAVIR
     Dosage: UNK UNK, Z: EVERY MONTH 600/900 MG
     Route: 030
     Dates: start: 20220830
  14. CABOTEGRAVIR [Suspect]
     Active Substance: CABOTEGRAVIR
     Dosage: UNK UNK, Z: EVERY MONTH 600/900 MG
     Route: 030
     Dates: start: 20220929
  15. CABOTEGRAVIR [Suspect]
     Active Substance: CABOTEGRAVIR
     Dosage: UNK UNK, Z:EVERY MONTH 600/900 MG
     Route: 030
     Dates: start: 20221026
  16. CABOTEGRAVIR [Suspect]
     Active Substance: CABOTEGRAVIR
     Dosage: UNK UNK, Z:EVERY MONTH 600/900 MG
     Route: 030
     Dates: start: 20221122
  17. VOCABRIA [Concomitant]
     Active Substance: CABOTEGRAVIR SODIUM
     Indication: HIV infection
     Dosage: 30 MG, QD
     Route: 048
     Dates: start: 20220405
  18. EDURANT [Concomitant]
     Active Substance: RILPIVIRINE HYDROCHLORIDE
     Indication: HIV infection
     Dosage: 25 MG, QD
     Route: 048
     Dates: start: 20220405
  19. NIFEDIPINE [Concomitant]
     Active Substance: NIFEDIPINE
     Indication: Product used for unknown indication
     Dosage: UNK
  20. SPIRONOLACTONE [Concomitant]
     Active Substance: SPIRONOLACTONE
     Indication: Product used for unknown indication
     Dosage: UNK

REACTIONS (3)
  - Viral load increased [Unknown]
  - Inappropriate schedule of product administration [Unknown]
  - Product administration error [Unknown]

NARRATIVE: CASE EVENT DATE: 20220101
